FAERS Safety Report 13936101 (Version 1)
Quarter: 2017Q3

REPORT INFORMATION
  Report Type: Spontaneous
  Country: CH (occurrence: CH)
  Receive Date: 20170905
  Receipt Date: 20170905
  Transmission Date: 20171127
  Serious: Yes (Hospitalization)
  Sender: FDA-Public Use
  Company Number: CH-UCBSA-2017034190

PATIENT
  Age: 87 Year
  Sex: Male

DRUGS (11)
  1. KEPPRA [Suspect]
     Active Substance: LEVETIRACETAM
     Indication: OFF LABEL USE
  2. LISINOPRIL. [Concomitant]
     Active Substance: LISINOPRIL
     Indication: PRODUCT USED FOR UNKNOWN INDICATION
     Dosage: 2.5 MG, ONCE DAILY (QD)
     Route: 048
     Dates: end: 201612
  3. DISTRANEURIN [Suspect]
     Active Substance: CLOMETHIAZOLE
     Indication: SLEEP DISORDER
     Dosage: UNK
     Route: 048
     Dates: start: 201612, end: 201612
  4. SINTROM [Suspect]
     Active Substance: ACENOCOUMAROL
     Indication: ATRIAL FIBRILLATION
     Dosage: UNK
     Route: 048
     Dates: end: 201611
  5. INSULIN [Concomitant]
     Active Substance: INSULIN NOS
     Indication: PRODUCT USED FOR UNKNOWN INDICATION
     Dosage: UNK
     Route: 058
  6. FORTECORTIN [Suspect]
     Active Substance: DEXAMETHASONE
     Indication: CRANIAL OPERATION
     Dosage: 4 MG, 2X/DAY (BID)
     Route: 048
     Dates: start: 201611, end: 201612
  7. ATORVASTATIN [Concomitant]
     Active Substance: ATORVASTATIN
     Indication: PRODUCT USED FOR UNKNOWN INDICATION
     Dosage: 10 MG, ONCE DAILY (QD)
     Route: 048
     Dates: end: 201612
  8. KEPPRA [Suspect]
     Active Substance: LEVETIRACETAM
     Indication: CRANIAL OPERATION
     Dosage: 500 MG, 2X/DAY (BID)
     Route: 048
     Dates: start: 20161112, end: 201612
  9. NEXIUM [Suspect]
     Active Substance: ESOMEPRAZOLE MAGNESIUM
     Indication: PRODUCT USED FOR UNKNOWN INDICATION
     Dosage: 40 MG, ONCE DAILY (QD)
     Route: 048
     Dates: start: 2016, end: 201612
  10. CITALOPRAM [Suspect]
     Active Substance: CITALOPRAM HYDROBROMIDE
     Indication: DEPRESSION
     Dosage: 1 DF, ONCE DAILY (QD)
     Route: 048
     Dates: start: 20161208, end: 201612
  11. DIAMICRON [Concomitant]
     Active Substance: GLICLAZIDE
     Indication: DIABETES MELLITUS
     Dosage: 60 MG, ONCE DAILY (QD)
     Route: 048
     Dates: end: 201612

REACTIONS (3)
  - Subdural haematoma [Recovered/Resolved with Sequelae]
  - Hepatocellular injury [Recovered/Resolved with Sequelae]
  - Off label use [Unknown]

NARRATIVE: CASE EVENT DATE: 201611
